FAERS Safety Report 6830619-X (Version None)
Quarter: 2010Q3

REPORT INFORMATION
  Report Type: 
  Country: None (occurrence: None)
  Receive Date: 20100709
  Receipt Date: 20100709
  Transmission Date: 20110219
  Serious: No
  Sender: FDA-Public Use
  Company Number: None

PATIENT
  Age: 80 Year
  Sex: Female
  Weight: 68.0396 kg

DRUGS (1)
  1. LIALDA [Suspect]
     Indication: COLITIS ULCERATIVE
     Dosage: 4 TABLETS DAILY
     Dates: start: 20100604, end: 20100614

REACTIONS (3)
  - HEART RATE IRREGULAR [None]
  - PHARYNGEAL OEDEMA [None]
  - PYREXIA [None]
